FAERS Safety Report 7123435-5 (Version None)
Quarter: 2010Q4

REPORT INFORMATION
  Report Type: 
  Country: None (occurrence: None)
  Receive Date: 20101125
  Receipt Date: 20101119
  Transmission Date: 20110411
  Serious: No
  Sender: FDA-Public Use
  Company Number: US-BIOGENIDEC-2010BI041276

PATIENT
  Age: 34 Year
  Sex: Female

DRUGS (2)
  1. TYSABRI [Suspect]
     Indication: MULTIPLE SCLEROSIS
     Route: 042
     Dates: start: 20101014
  2. TYSABRI [Suspect]
     Route: 042
     Dates: start: 20080611, end: 20080912

REACTIONS (3)
  - FALL [None]
  - HEADACHE [None]
  - HYPOAESTHESIA [None]
